FAERS Safety Report 21719429 (Version 2)
Quarter: 2022Q4

REPORT INFORMATION
  Report Type: Report from Study
  Country: US (occurrence: US)
  Receive Date: 20221213
  Receipt Date: 20221213
  Transmission Date: 20230112
  Serious: No
  Sender: FDA-Public Use
  Company Number: US-ABBVIE-4208620

PATIENT
  Sex: Female

DRUGS (1)
  1. HUMIRA [Suspect]
     Active Substance: ADALIMUMAB
     Indication: Rheumatoid arthritis
     Route: 058

REACTIONS (6)
  - Injection site swelling [Recovered/Resolved]
  - Injection site bruising [Recovered/Resolved]
  - Injection site pruritus [Recovered/Resolved]
  - Injection site warmth [Not Recovered/Not Resolved]
  - Injection site erythema [Recovered/Resolved]
  - Feeling abnormal [Unknown]
